FAERS Safety Report 19510427 (Version 1)
Quarter: 2021Q3

REPORT INFORMATION
  Report Type: Spontaneous
  Country: US (occurrence: US)
  Receive Date: 20210708
  Receipt Date: 20210708
  Transmission Date: 20211014
  Serious: No
  Sender: FDA-Public Use
  Company Number: None

PATIENT
  Age: 24 Year
  Sex: Female
  Weight: 49.5 kg

DRUGS (4)
  1. METHYLPHENIDATE 36MG ER OSM TABLET [Suspect]
     Active Substance: METHYLPHENIDATE
     Indication: ATTENTION DEFICIT HYPERACTIVITY DISORDER
     Dosage: ?          QUANTITY:1 TABLET(S);?
     Route: 048
  2. METHYLPHENIDATE HCL EXTENDED RELEASE [Concomitant]
     Active Substance: METHYLPHENIDATE HYDROCHLORIDE
  3. ALBUTERAL [Concomitant]
     Active Substance: ALBUTEROL
  4. NAPROXEN SODIUM. [Concomitant]
     Active Substance: NAPROXEN SODIUM

REACTIONS (6)
  - Feeling abnormal [None]
  - Suicidal ideation [None]
  - Disturbance in attention [None]
  - Asthenia [None]
  - Product substitution issue [None]
  - Depression [None]

NARRATIVE: CASE EVENT DATE: 20201209
